FAERS Safety Report 4447979-X (Version None)
Quarter: 2004Q3

REPORT INFORMATION
  Report Type: 
  Country: None (occurrence: None)
  Receive Date: 20040913
  Receipt Date: 20040802
  Transmission Date: 20050211
  Serious: Yes (Death, Hospitalization)
  Sender: FDA-Public Use
  Company Number: AU-AMGEN-US087424

PATIENT
  Age: 72 Year
  Sex: Female

DRUGS (10)
  1. ENBREL [Suspect]
     Indication: RHEUMATOID ARTHRITIS
     Dates: end: 20030101
  2. ENALAPRIL [Concomitant]
  3. PREDNISOLONE [Concomitant]
  4. ARAVA [Concomitant]
  5. FOLIC ACID [Concomitant]
  6. METHADONE HCL [Concomitant]
  7. INDAPAMIDE [Concomitant]
  8. VERAPAMIL HYDROCHLORIDE [Concomitant]
  9. OMEPRAZOLE [Concomitant]
  10. ALENDRONATE SODIUM [Concomitant]

REACTIONS (14)
  - ARRHYTHMIA [None]
  - BRADYCARDIA [None]
  - CARDIAC ARREST [None]
  - CELLULITIS [None]
  - DYSPNOEA [None]
  - FUNGAL INFECTION [None]
  - HYPERKALAEMIA [None]
  - LOCALISED INFECTION [None]
  - LOWER RESPIRATORY TRACT INFECTION [None]
  - OSTEOMYELITIS [None]
  - PRODUCTIVE COUGH [None]
  - SEPSIS [None]
  - SKIN ULCER [None]
  - WOUND INFECTION STAPHYLOCOCCAL [None]
